FAERS Safety Report 7287457-6 (Version None)
Quarter: 2011Q1

REPORT INFORMATION
  Report Type: 
  Country: None (occurrence: None)
  Receive Date: 20110211
  Receipt Date: 20110202
  Transmission Date: 20110831
  Serious: Yes (Hospitalization)
  Sender: FDA-Public Use
  Company Number: IT-JNJFOC-20110201379

PATIENT
  Sex: Female

DRUGS (1)
  1. SERENASE [Suspect]
     Indication: INSOMNIA
     Route: 048

REACTIONS (4)
  - INTENTIONAL DRUG MISUSE [None]
  - SINUS TACHYCARDIA [None]
  - ACCOMMODATION DISORDER [None]
  - OFF LABEL USE [None]
